FAERS Safety Report 20331336 (Version 1)
Quarter: 2022Q1

REPORT INFORMATION
  Report Type: Spontaneous
  Country: US (occurrence: None)
  Receive Date: 20220112
  Receipt Date: 20220112
  Transmission Date: 20220424
  Serious: No
  Sender: FDA-Public Use
  Company Number: None

PATIENT
  Sex: Female

DRUGS (6)
  1. HUMIRA [Suspect]
     Active Substance: ADALIMUMAB
     Indication: Rheumatoid arthritis
     Dosage: OTHER FREQUENCY : EVERY 14 DAYS ;?
     Route: 058
     Dates: start: 20210701
  2. PROAIR DIGlFALER, [Concomitant]
  3. TRAMADOL HCL [Suspect]
     Active Substance: TRAMADOL HYDROCHLORIDE
  4. LEFLUNOMIDE [Suspect]
     Active Substance: LEFLUNOMIDE
  5. LIPITOR [Suspect]
     Active Substance: ATORVASTATIN CALCIUM
  6. MELOXICAM [Suspect]
     Active Substance: MELOXICAM

REACTIONS (5)
  - Therapy interrupted [None]
  - Spinal operation [None]
  - Hip surgery [None]
  - Limb operation [None]
  - Pain [None]
